FAERS Safety Report 8195872-1 (Version None)
Quarter: 2012Q1

REPORT INFORMATION
  Report Type: 
  Country: None (occurrence: None)
  Receive Date: 20120308
  Receipt Date: 20120228
  Transmission Date: 20120608
  Serious: Yes (Other)
  Sender: FDA-Public Use
  Company Number: US-ASTRAZENECA-2011SE07983

PATIENT
  Age: 52 Year
  Sex: Female

DRUGS (1)
  1. ZOMIG [Suspect]
     Route: 048

REACTIONS (4)
  - HEADACHE [None]
  - ANKLE FRACTURE [None]
  - MIGRAINE [None]
  - INCORRECT DOSE ADMINISTERED [None]
